FAERS Safety Report 5368175-8 (Version None)
Quarter: 2007Q2

REPORT INFORMATION
  Report Type: 
  Country: None (occurrence: None)
  Receive Date: 20070625
  Receipt Date: 20070615
  Transmission Date: 20071010
  Serious: Yes (Hospitalization)
  Sender: FDA-Public Use
  Company Number: PHRM2007FR01696

PATIENT
  Age: 73 Year
  Sex: Female
  Weight: 111 kg

DRUGS (4)
  1. VOLTAREN [Suspect]
     Indication: OSTEOARTHRITIS
     Dosage: UNK, PRN
     Route: 048
     Dates: start: 19991201, end: 20060801
  2. FELDENE [Suspect]
     Indication: OSTEOARTHRITIS
     Dosage: UNK, PRN (TOTAL OF 1 PACK)
     Route: 048
     Dates: start: 20051201, end: 20051201
  3. FELDENE [Suspect]
     Dosage: UNK, PRN (TOTAL OF 1 PACK)
     Route: 048
     Dates: start: 20060101, end: 20060101
  4. FELDENE [Suspect]
     Dosage: 1 DF, PRN (TOTAL OF 1 PACK)
     Route: 048
     Dates: start: 20050301, end: 20050301

REACTIONS (17)
  - BLOOD PH INCREASED [None]
  - BRONCHOALVEOLAR LAVAGE [None]
  - CYANOSIS [None]
  - EOSINOPHILIA [None]
  - HAEMATOCRIT DECREASED [None]
  - HAEMOGLOBIN DECREASED [None]
  - HYPOXIA [None]
  - INTERSTITIAL LUNG DISEASE [None]
  - KNEE ARTHROPLASTY [None]
  - OXYGEN SATURATION DECREASED [None]
  - OXYGEN SUPPLEMENTATION [None]
  - PO2 DECREASED [None]
  - POSTOPERATIVE RESPIRATORY DISTRESS [None]
  - PULMONARY OEDEMA [None]
  - RALES [None]
  - RED BLOOD CELL COUNT DECREASED [None]
  - WHITE BLOOD CELL COUNT INCREASED [None]
